FAERS Safety Report 7070466-X (Version None)
Quarter: 2010Q4

REPORT INFORMATION
  Report Type: 
  Country: None (occurrence: None)
  Receive Date: 20101028
  Receipt Date: 20101028
  Transmission Date: 20110411
  Serious: No
  Sender: FDA-Public Use
  Company Number: None

PATIENT
  Age: 70 Year
  Sex: Female

DRUGS (1)
  1. SIMVASTATIN [Suspect]
     Indication: BLOOD CHOLESTEROL INCREASED
     Dosage: 1 TABLET DAILY
     Dates: start: 20100330, end: 20100929

REACTIONS (5)
  - ALOPECIA [None]
  - CONTUSION [None]
  - HAIR TEXTURE ABNORMAL [None]
  - NAIL DISORDER [None]
  - VISION BLURRED [None]
